FAERS Safety Report 15008678 (Version 1)
Quarter: 2018Q2

REPORT INFORMATION
  Report Type: Spontaneous
  Country: US (occurrence: US)
  Receive Date: 20180613
  Receipt Date: 20180613
  Transmission Date: 20180711
  Serious: No
  Sender: FDA-Public Use
  Company Number: US-VIFOR (INTERNATIONAL) INC.-VIT-2016-05543

PATIENT
  Sex: Female
  Weight: 88.08 kg

DRUGS (21)
  1. JANUVIA [Concomitant]
     Active Substance: SITAGLIPTIN PHOSPHATE
  2. HYDROCHLOROTHIAZIDE/LISINOPRIL [Concomitant]
  3. ALPHA LIPOIC ACID [Concomitant]
     Active Substance: .ALPHA.-LIPOIC ACID
  4. ACETYLSALICYLIC ACID [Concomitant]
     Active Substance: ASPIRIN
  5. LASIX [Concomitant]
     Active Substance: FUROSEMIDE
     Indication: RENAL DISORDER
  6. ISOSORBIDE MONONITRATE. [Concomitant]
     Active Substance: ISOSORBIDE MONONITRATE
     Route: 048
  7. CETIRIZINE HYDROCHLORIDE. [Concomitant]
     Active Substance: CETIRIZINE HYDROCHLORIDE
  8. HUMULIN NOS [Concomitant]
     Active Substance: INSULIN HUMAN
  9. PANTOPRAZOLE SODIUM SESQUIHYDRATE [Concomitant]
     Active Substance: PANTOPRAZOLE SODIUM
  10. PRAVASTATIN SODIUM. [Concomitant]
     Active Substance: PRAVASTATIN SODIUM
  11. CLAVIX [Concomitant]
     Indication: CARDIAC DISORDER
     Route: 048
  12. LIPITOR [Concomitant]
     Active Substance: ATORVASTATIN CALCIUM
     Route: 048
  13. CARVEDILOL. [Concomitant]
     Active Substance: CARVEDILOL
  14. LASIX [Concomitant]
     Active Substance: FUROSEMIDE
     Indication: SWELLING
     Route: 048
  15. FERROUS SULFATE. [Concomitant]
     Active Substance: FERROUS SULFATE
  16. CLAVIX [Concomitant]
     Indication: CARDIAC OPERATION
  17. PROZAC [Concomitant]
     Active Substance: FLUOXETINE HYDROCHLORIDE
     Indication: CRYING
     Route: 048
  18. NORVASC [Concomitant]
     Active Substance: AMLODIPINE BESYLATE
     Indication: CARDIAC DISORDER
     Route: 048
  19. SODIUM BICARBONATE. [Concomitant]
     Active Substance: SODIUM BICARBONATE
  20. FOLBEE PLUS [Concomitant]
     Indication: RENAL DISORDER
     Route: 048
  21. VELTASSA [Suspect]
     Active Substance: PATIROMER
     Indication: HYPERKALAEMIA
     Route: 048

REACTIONS (5)
  - Pain [Not Recovered/Not Resolved]
  - Nausea [Unknown]
  - Pain in extremity [Not Recovered/Not Resolved]
  - Back pain [Not Recovered/Not Resolved]
  - Blood glucose increased [Unknown]
